FAERS Safety Report 7409650-1 (Version None)
Quarter: 2011Q2

REPORT INFORMATION
  Report Type: 
  Country: None (occurrence: None)
  Receive Date: 20110412
  Receipt Date: 20110321
  Transmission Date: 20111010
  Serious: Yes (Hospitalization, Other)
  Sender: FDA-Public Use
  Company Number: US-BAYER-2010-002105

PATIENT
  Sex: Female
  Weight: 77.098 kg

DRUGS (3)
  1. NUVARING [Concomitant]
     Indication: POLYCYSTIC OVARIES
     Dosage: UNK
     Dates: end: 20070626
  2. METFORMIN HCL [Concomitant]
     Dosage: 500 MG, UNK
     Dates: start: 20060304
  3. YASMIN [Suspect]
     Indication: PRODUCT USED FOR UNKNOWN INDICATION
     Dosage: UNK
     Dates: start: 20060301, end: 20070401

REACTIONS (2)
  - PULMONARY EMBOLISM [None]
  - THROMBOSIS [None]
